FAERS Safety Report 6463557-5 (Version None)
Quarter: 2009Q4

REPORT INFORMATION
  Report Type: 
  Country: None (occurrence: None)
  Receive Date: 20091123
  Receipt Date: 20091116
  Transmission Date: 20100525
  Serious: Yes (Hospitalization)
  Sender: FDA-Public Use
  Company Number: 20096094

PATIENT
  Sex: Female

DRUGS (1)
  1. BACLOFEN [Suspect]
     Indication: MUSCLE SPASTICITY
     Dosage: 50-85 MCG, DAILY, INTRATHECAL
     Route: 037
     Dates: start: 20070827

REACTIONS (3)
  - HYPOAESTHESIA [None]
  - NO THERAPEUTIC RESPONSE [None]
  - OEDEMA [None]
